FAERS Safety Report 17407659 (Version 1)
Quarter: 2020Q1

REPORT INFORMATION
  Report Type: Other
  Country: CA (occurrence: CA)
  Receive Date: 20200212
  Receipt Date: 20200212
  Transmission Date: 20200409
  Serious: Yes (Other)
  Sender: FDA-Public Use
  Company Number: CA-ASTELLAS-2020US004113

PATIENT
  Age: 58 Year
  Sex: Male

DRUGS (15)
  1. BICALUTAMIDE. [Suspect]
     Active Substance: BICALUTAMIDE
     Indication: METASTASES TO BONE
  2. ETRAVIRINE [Suspect]
     Active Substance: ETRAVIRINE
     Route: 065
  3. RITONAVIR. [Suspect]
     Active Substance: RITONAVIR
     Route: 065
  4. BICALUTAMIDE. [Suspect]
     Active Substance: BICALUTAMIDE
     Indication: PROSTATE CANCER
     Dosage: UNK UNK, UNKNOWN FREQ.
     Route: 065
  5. EMTRICITABINE;TENOFOVIR ALAFENAMIDE FUMARATE [Concomitant]
     Indication: HIV INFECTION
     Dosage: UNK UNK, ONCE DAILY
     Route: 065
  6. RALTEGRAVIR. [Concomitant]
     Active Substance: RALTEGRAVIR
     Indication: HIV INFECTION
     Route: 065
  7. RITONAVIR. [Suspect]
     Active Substance: RITONAVIR
     Indication: HIV INFECTION
     Route: 065
  8. ENZALUTAMIDE [Suspect]
     Active Substance: ENZALUTAMIDE
     Indication: PROSTATE CANCER
     Dosage: UNK UNK, UNKNOWN FREQ.
     Route: 065
  9. BICALUTAMIDE. [Suspect]
     Active Substance: BICALUTAMIDE
     Indication: METASTASES TO BONE
  10. DARUNAVIR [Suspect]
     Active Substance: DARUNAVIR
     Indication: HIV INFECTION
     Route: 065
  11. DOLUTEGRAVIR [Suspect]
     Active Substance: DOLUTEGRAVIR
     Indication: HIV INFECTION
     Route: 065
  12. ETRAVIRINE [Suspect]
     Active Substance: ETRAVIRINE
     Indication: HIV INFECTION
     Route: 065
  13. LEUPROLIDE ACETATE. [Suspect]
     Active Substance: LEUPROLIDE ACETATE
     Indication: METASTASES TO BONE
  14. BICALUTAMIDE. [Suspect]
     Active Substance: BICALUTAMIDE
     Indication: PROSTATE CANCER
     Dosage: UNK, UNKNOWN FREQ.
     Route: 065
  15. LEUPROLIDE ACETATE. [Suspect]
     Active Substance: LEUPROLIDE ACETATE
     Indication: PROSTATE CANCER
     Dosage: UNK UNK, UNKNOWN FREQ.
     Route: 065

REACTIONS (4)
  - Prostate cancer [Unknown]
  - Drug ineffective [Unknown]
  - Drug interaction [Unknown]
  - Drug level decreased [Unknown]
